FAERS Safety Report 9888512 (Version 1)
Quarter: 2014Q1

REPORT INFORMATION
  Report Type: Spontaneous
  Country: US (occurrence: US)
  Receive Date: 20140211
  Receipt Date: 20140211
  Transmission Date: 20141002
  Serious: Yes (Other)
  Sender: FDA-Public Use
  Company Number: US-BAYER-2014-018980

PATIENT
  Age: 27 Year
  Sex: Female

DRUGS (2)
  1. MIRENA [Suspect]
     Dosage: UNK
     Route: 015
     Dates: start: 201207, end: 2012
  2. MIRENA [Suspect]
     Dosage: UNK
     Route: 015
     Dates: start: 2012

REACTIONS (5)
  - Device dislocation [None]
  - Menorrhagia [None]
  - Muscle spasms [Not Recovered/Not Resolved]
  - Pregnancy with contraceptive device [Not Recovered/Not Resolved]
  - Device misuse [None]
